FAERS Safety Report 4718375-2 (Version None)
Quarter: 2005Q3

REPORT INFORMATION
  Report Type: 
  Country: None (occurrence: None)
  Receive Date: 20050720
  Receipt Date: 20050228
  Transmission Date: 20060218
  Serious: Yes (Other)
  Sender: FDA-Public Use
  Company Number: NL-GLAXOSMITHKLINE-B0387555A

PATIENT
  Age: 27 Year
  Sex: Female

DRUGS (1)
  1. NIQUITIN CQ CLEAR 21MG [Suspect]
     Dosage: 21MG PER DAY
     Route: 062
     Dates: start: 20050204, end: 20050204

REACTIONS (4)
  - ASTHENIA [None]
  - BLINDNESS TRANSIENT [None]
  - NAUSEA [None]
  - VOMITING [None]
